FAERS Safety Report 4670406-4 (Version None)
Quarter: 2005Q2

REPORT INFORMATION
  Report Type: 
  Country: None (occurrence: None)
  Receive Date: 20050523
  Receipt Date: 20050513
  Transmission Date: 20051028
  Serious: Yes (Life-Threatening)
  Sender: FDA-Public Use
  Company Number: US-MERCK-0505USA01730

PATIENT
  Age: 35 Year
  Sex: Female

DRUGS (3)
  1. MAXALT [Suspect]
     Indication: MIGRAINE
     Route: 048
     Dates: end: 20050501
  2. OLMESARTAN MEDOXOMIL [Concomitant]
     Route: 065
  3. WELLBUTRIN [Concomitant]
     Route: 065

REACTIONS (1)
  - VASOSPASM [None]
